FAERS Safety Report 9171693 (Version 1)
Quarter: 2013Q1

REPORT INFORMATION
  Report Type: Spontaneous
  Country: US (occurrence: US)
  Receive Date: 20130319
  Receipt Date: 20130319
  Transmission Date: 20140127
  Serious: No
  Sender: FDA-Public Use
  Company Number: US-ASTRAZENECA-2013SE10355

PATIENT
  Age: 66 Year
  Sex: Female
  Weight: 62.6 kg

DRUGS (15)
  1. ENTOCORT EC [Suspect]
     Indication: DIARRHOEA
     Route: 048
     Dates: start: 20121224
  2. ENTOCORT EC [Suspect]
     Indication: DIARRHOEA
     Route: 048
  3. ENTOCORT EC [Suspect]
     Indication: DIARRHOEA
     Route: 048
     Dates: end: 20130207
  4. SMALL ASPIRIN [Concomitant]
     Indication: ANTICOAGULANT THERAPY
     Route: 048
     Dates: start: 201212
  5. CYMBALTA [Concomitant]
     Indication: FIBROMYALGIA
  6. STEROID [Concomitant]
     Indication: RASH
  7. BENADRYL [Concomitant]
     Indication: RASH
     Dosage: AS REQUIRED
     Dates: start: 201212
  8. MEGA DOSE VITAMIN D [Concomitant]
     Dosage: 50000 UNITS, UNKNOWN FRQUENCY
  9. CALCIUM [Concomitant]
  10. CHLORATHADONE [Concomitant]
     Indication: BLOOD PRESSURE ABNORMAL
     Dates: start: 201211
  11. COLON HEALTH [Concomitant]
     Indication: PROBIOTIC THERAPY
     Dates: start: 20130122
  12. MULTIVITAMIN [Concomitant]
  13. BIOTIN [Concomitant]
     Indication: HAIR DISORDER
     Dates: start: 201302
  14. BIOTIN [Concomitant]
     Indication: NAIL DISORDER
     Dates: start: 201302
  15. BIOTIN [Concomitant]
     Indication: SKIN DISORDER
     Dates: start: 201302

REACTIONS (4)
  - Diarrhoea [Unknown]
  - Impaired healing [Unknown]
  - Rash generalised [Unknown]
  - Drug hypersensitivity [Unknown]
